FAERS Safety Report 24575936 (Version 1)
Quarter: 2024Q4

REPORT INFORMATION
  Report Type: Report from Study
  Country: ES (occurrence: ES)
  Receive Date: 20241104
  Receipt Date: 20241104
  Transmission Date: 20250114
  Serious: Yes (Hospitalization)
  Sender: ABBVIE
  Company Number: ES-JNJFOC-20241015219

PATIENT
  Age: 70 Year
  Sex: Female
  Weight: 57 kg

DRUGS (10)
  1. DEXAMETHASONE [Suspect]
     Active Substance: DEXAMETHASONE
     Indication: Primary amyloidosis
     Route: 050
     Dates: start: 20240529, end: 20240925
  2. ASCORBIC ACID\POTASSIUM BICARBONATE [Concomitant]
     Active Substance: ASCORBIC ACID\POTASSIUM BICARBONATE
     Indication: Product used for unknown indication
  3. CYCLOPHOSPHAMIDE [Suspect]
     Active Substance: CYCLOPHOSPHAMIDE
     Indication: Primary amyloidosis
     Route: 065
     Dates: start: 20240529, end: 20240925
  4. VELCADE [Suspect]
     Active Substance: BORTEZOMIB
     Indication: Primary amyloidosis
     Route: 058
     Dates: start: 20240529, end: 20240925
  5. EUTHYROX [Concomitant]
     Active Substance: LEVOTHYROXINE SODIUM
     Indication: Product used for unknown indication
  6. MIRTAZAPINE [Concomitant]
     Active Substance: MIRTAZAPINE
     Indication: Product used for unknown indication
  7. FUROSEMIDE [Concomitant]
     Active Substance: FUROSEMIDE
     Indication: Product used for unknown indication
  8. AMILORIDE HYDROCHLORIDE\HYDROCHLOROTHIAZIDE [Concomitant]
     Active Substance: AMILORIDE HYDROCHLORIDE\HYDROCHLOROTHIAZIDE
     Indication: Product used for unknown indication
  9. DARATUMUMAB [Suspect]
     Active Substance: DARATUMUMAB
     Indication: Primary amyloidosis
     Route: 065
     Dates: start: 20240529, end: 20240911
  10. ACYCLOVIR [Concomitant]
     Active Substance: ACYCLOVIR
     Indication: Product used for unknown indication

REACTIONS (3)
  - Cardiac failure [Recovered/Resolved]
  - Pneumonia viral [Recovered/Resolved]
  - Off label use [Unknown]

NARRATIVE: CASE EVENT DATE: 20240529
